FAERS Safety Report 5175058-5 (Version None)
Quarter: 2006Q4

REPORT INFORMATION
  Report Type: 
  Country: None (occurrence: None)
  Receive Date: 20061214
  Receipt Date: 20060528
  Transmission Date: 20070319
  Serious: No
  Sender: FDA-Public Use
  Company Number: US-AMGEN-KDL181101

PATIENT
  Sex: Female

DRUGS (2)
  1. ENBREL [Suspect]
     Indication: DRUG USE FOR UNKNOWN INDICATION
     Route: 058
     Dates: start: 20060220
  2. ANTIBIOTICS [Concomitant]

REACTIONS (3)
  - DYSPNOEA [None]
  - URINARY TRACT INFECTION [None]
  - URTICARIA [None]
